FAERS Safety Report 4544567-1 (Version None)
Quarter: 2005Q1

REPORT INFORMATION
  Report Type: 
  Country: None (occurrence: None)
  Receive Date: 20050103
  Receipt Date: 20050103
  Transmission Date: 20050727
  Serious: Yes (Other)
  Sender: FDA-Public Use
  Company Number: None

PATIENT
  Age: 30 Year
  Sex: Male
  Weight: 90.7194 kg

DRUGS (1)
  1. PAXIL [Suspect]
     Indication: PANIC DISORDER
     Dosage: 40MG  1 TIME DAILY ORAL
     Route: 048
     Dates: start: 20040101, end: 20041225

REACTIONS (3)
  - DRUG WITHDRAWAL SYNDROME [None]
  - PERSONALITY CHANGE [None]
  - TINNITUS [None]
